FAERS Safety Report 17908931 (Version 1)
Quarter: 2020Q2

REPORT INFORMATION
  Report Type: Spontaneous
  Country: US (occurrence: US)
  Receive Date: 20200617
  Receipt Date: 20200617
  Transmission Date: 20200714
  Serious: No
  Sender: FDA-Public Use
  Company Number: US-009507513-2006USA001658

PATIENT
  Age: 55 Year
  Sex: Female

DRUGS (1)
  1. DULERA [Suspect]
     Active Substance: FORMOTEROL FUMARATE DIHYDRATE\MOMETASONE FUROATE
     Indication: ASTHMA
     Dosage: 2 PUFF ONCE A DAY
     Route: 055
     Dates: start: 20200602

REACTIONS (5)
  - Inappropriate schedule of product administration [Unknown]
  - Therapeutic response unexpected [Unknown]
  - Euphoric mood [Recovered/Resolved]
  - Insomnia [Unknown]
  - Euphoric mood [Recovered/Resolved]

NARRATIVE: CASE EVENT DATE: 20200602
